FAERS Safety Report 7440251-5 (Version None)
Quarter: 2011Q2

REPORT INFORMATION
  Report Type: 
  Country: None (occurrence: None)
  Receive Date: 20110427
  Receipt Date: 20100507
  Transmission Date: 20111010
  Serious: No
  Sender: FDA-Public Use
  Company Number: US-PFIZER INC-2010057998

PATIENT
  Age: 62 Year
  Sex: Male

DRUGS (3)
  1. ZITHROMAX [Suspect]
     Indication: SNEEZING
  2. ZITHROMAX [Suspect]
     Indication: COUGH
     Dosage: UNK
  3. ZITHROMAX [Suspect]
     Indication: RHINORRHOEA

REACTIONS (1)
  - DRUG INEFFECTIVE [None]
